FAERS Safety Report 15035790 (Version 1)
Quarter: 2018Q2

REPORT INFORMATION
  Report Type: Spontaneous
  Country: NZ (occurrence: NZ)
  Receive Date: 20180620
  Receipt Date: 20180620
  Transmission Date: 20180711
  Serious: Yes (Other)
  Sender: FDA-Public Use
  Company Number: NZ-PFIZER INC-2017532538

PATIENT
  Age: 41 Year
  Sex: Male
  Weight: 97.5 kg

DRUGS (8)
  1. VENLAFAXINE HCL [Suspect]
     Active Substance: VENLAFAXINE HYDROCHLORIDE
     Indication: ANXIETY
  2. HUMIRA [Concomitant]
     Active Substance: ADALIMUMAB
     Indication: CROHN^S DISEASE
     Dosage: 40 MG, WEEKLY
     Dates: start: 201501
  3. THIOGUANINE [Concomitant]
     Active Substance: THIOGUANINE
     Indication: CROHN^S DISEASE
     Dosage: 20 MG, 1X/DAY
     Route: 048
     Dates: start: 201701
  4. PENTASA [Concomitant]
     Active Substance: MESALAMINE
     Indication: CROHN^S DISEASE
     Dosage: 1 G, 2X/DAY
     Route: 048
     Dates: start: 201501
  5. VENLAFAXINE HCL [Suspect]
     Active Substance: VENLAFAXINE HYDROCHLORIDE
     Indication: DEPRESSION
     Dosage: 150 MG, 1X/DAY
     Route: 048
     Dates: start: 20160421, end: 20170528
  6. CLONAZEPAM. [Concomitant]
     Active Substance: CLONAZEPAM
     Dosage: 0.25 MG, 1X/DAY
  7. ZOPLICONE [Concomitant]
     Active Substance: ZOPICLONE
     Indication: ANXIETY
     Dosage: 75 MG, 1X/DAY
  8. GABAPENTIN. [Concomitant]
     Active Substance: GABAPENTIN
     Dosage: 300 MG, 3X/DAY

REACTIONS (6)
  - Neuralgia [Recovering/Resolving]
  - Drug ineffective [Unknown]
  - Loss of personal independence in daily activities [Not Recovered/Not Resolved]
  - Withdrawal syndrome [Unknown]
  - Nerve injury [Not Recovered/Not Resolved]
  - Suicidal ideation [Not Recovered/Not Resolved]

NARRATIVE: CASE EVENT DATE: 20170528
